FAERS Safety Report 9893125 (Version 1)
Quarter: 2014Q1

REPORT INFORMATION
  Report Type: Report from Study
  Country: US (occurrence: US)
  Receive Date: 20140213
  Receipt Date: 20140213
  Transmission Date: 20141002
  Serious: Yes (Disabling, Other)
  Sender: FDA-Public Use
  Company Number: US-ROCHE-1327153

PATIENT
  Sex: Male

DRUGS (8)
  1. AVASTIN [Suspect]
     Indication: LUNG NEOPLASM MALIGNANT
     Dosage: 17/JUN/2011, 01/JUL/2011, 15/JUL/2011, 29/JUL/2011, 12/AUG/2011, 28/AUG/2011, 09/SEP/2011, 23/SEP/20
     Route: 042
     Dates: start: 20110603
  2. AVASTIN [Suspect]
     Indication: METASTASES TO NERVOUS SYSTEM
     Dosage: 20/APR/2012, 04/MAY/2012, 17/MAY/2012,
     Route: 042
  3. ATROPINE SULFATE [Concomitant]
     Route: 042
  4. DEXAMETHASONE SODIUM PHOSPHATE [Concomitant]
     Route: 042
  5. KYTRIL [Concomitant]
     Route: 042
  6. ZOLEDRONIC ACID [Concomitant]
     Route: 042
  7. IRINOTECAN HYDROCHLORIDE TRIHYDRATE [Concomitant]
     Route: 042
  8. CPT-11 [Concomitant]

REACTIONS (15)
  - Bone cancer [Unknown]
  - Bone cancer [Unknown]
  - Deafness [Unknown]
  - Vitamin D deficiency [Unknown]
  - Back pain [Unknown]
  - Depression [Unknown]
  - Urinary tract infection [Unknown]
  - Malaise [Unknown]
  - Neuropathy peripheral [Unknown]
  - Congenital neuropathy [Unknown]
  - Arthralgia [Unknown]
  - Pelvic pain [Unknown]
  - Pain in extremity [Unknown]
  - Hypovolaemia [Unknown]
  - Fatigue [Unknown]
